FAERS Safety Report 7558081-2 (Version None)
Quarter: 2011Q2

REPORT INFORMATION
  Report Type: 
  Country: None (occurrence: None)
  Receive Date: 20110620
  Receipt Date: 20110608
  Transmission Date: 20111010
  Serious: Yes (Hospitalization)
  Sender: FDA-Public Use
  Company Number: JP-UCBSA-014653

PATIENT
  Sex: Female

DRUGS (32)
  1. SULPIRIDE [Concomitant]
     Dates: start: 20110224
  2. QUAZEPAM [Concomitant]
     Dates: start: 20110224
  3. CERTOLIZUMAB PEGOL [Suspect]
     Dosage: C870-041
     Route: 058
     Dates: start: 20090101, end: 20091015
  4. CERTOLIZUMAB PEGOL [Suspect]
     Route: 058
     Dates: start: 20091029
  5. SERTRALINE HYDROCHLORIDE [Concomitant]
     Dates: start: 20071121
  6. LANSOPRAZOLE [Concomitant]
     Dates: start: 20070129
  7. FERROUS SULFATE TAB [Concomitant]
     Dates: start: 20090820
  8. FOLIC ACID [Concomitant]
     Dates: start: 20081224
  9. ATORVASTATIN CALCIUM [Concomitant]
     Dates: start: 20060406
  10. KETOPROFEN [Concomitant]
     Dosage: QS
     Dates: start: 20090325
  11. KETOPROFEN [Concomitant]
     Dosage: QS
     Dates: start: 20090423
  12. CARBAMAZEPINE [Concomitant]
     Dates: start: 20110224
  13. BERAPROST SODIUM [Concomitant]
     Dates: start: 20100705
  14. TRIAZOLAM [Concomitant]
     Dates: start: 20070221
  15. FOLIC ACID [Concomitant]
     Dates: start: 20100705
  16. MECOBALAMIN [Concomitant]
     Dates: start: 20060614
  17. METHOTREXATE [Concomitant]
     Dosage: 8 MG WEEKLY IN THREE DIVIDED DOSES
     Dates: start: 20100705
  18. KETOPROFEN [Concomitant]
     Dosage: QS
     Dates: start: 20080806
  19. SULPIRIDE [Concomitant]
     Dates: start: 20061221
  20. ETIZOLAM [Concomitant]
     Dates: start: 20110224
  21. ZOLPIDEM TARTRATE [Concomitant]
     Dates: start: 20110224
  22. SENNOSIDE [Concomitant]
     Dates: start: 20100527
  23. CARBAMAZEPINE [Concomitant]
     Dates: start: 20070201
  24. ETIZOLAM [Concomitant]
     Dates: start: 20070201
  25. MILNACIPRAN HYDROCHLORIDE [Concomitant]
     Dates: start: 20061221
  26. MELOXICAM [Concomitant]
     Dates: start: 20080806
  27. SOFALCONE [Concomitant]
     Dates: start: 20100415
  28. IMIDAPRIL HYDROCHLORIDE [Concomitant]
     Dates: start: 20090806
  29. LITHIUM CARBONATE [Concomitant]
     Dates: start: 20110224
  30. CERTOLIZUMAB PEGOL [Suspect]
     Indication: RHEUMATOID ARTHRITIS
     Dosage: C870-041
     Route: 058
     Dates: start: 20090416, end: 20090101
  31. BERAPROST SODIUM [Concomitant]
     Dates: start: 20080213
  32. AN EXTRACT OBTAINED FROM INFLAMMATORY RABBIT SKIN INOCULA [Concomitant]
     Dosage: 3 TABLETS DAILY
     Dates: start: 20080806

REACTIONS (2)
  - DEMENTIA [None]
  - RHEUMATOID ARTHRITIS [None]
